FAERS Safety Report 25149832 (Version 1)
Quarter: 2025Q2

REPORT INFORMATION
  Report Type: Spontaneous
  Country: US (occurrence: US)
  Receive Date: 20250402
  Receipt Date: 20250402
  Transmission Date: 20250717
  Serious: No
  Sender: BAYER
  Company Number: US-BAYER-2025A041962

PATIENT
  Sex: Female

DRUGS (4)
  1. MIRENA [Suspect]
     Active Substance: LEVONORGESTREL
     Indication: Intrauterine contraception
     Dosage: 20?G/DAY
     Route: 015
     Dates: start: 202308
  2. DUPIXENT [Concomitant]
     Active Substance: DUPILUMAB
  3. EUCRISA [Concomitant]
     Active Substance: CRISABOROLE
  4. MOMETASONE [Concomitant]
     Active Substance: MOMETASONE

REACTIONS (1)
  - Adverse event [None]
